FAERS Safety Report 8958670 (Version 1)
Quarter: 2012Q4

REPORT INFORMATION
  Report Type: Spontaneous
  Country: US (occurrence: None)
  Receive Date: 20121206
  Receipt Date: 20121206
  Transmission Date: 20130627
  Serious: Yes (Other)
  Sender: FDA-Public Use
  Company Number: None

PATIENT
  Age: 67 Year
  Sex: Female
  Weight: 71.67 kg

DRUGS (1)
  1. CIPROFLOXACIN [Suspect]
     Indication: URINARY TRACT INFECTION
     Dosage: 2   daily po
     Route: 048
     Dates: start: 20121120, end: 20121122

REACTIONS (5)
  - Arthralgia [None]
  - Swelling [None]
  - Tenderness [None]
  - Pruritus [None]
  - Pruritus [None]
